FAERS Safety Report 22830608 (Version 3)
Quarter: 2023Q4

REPORT INFORMATION
  Report Type: Report from Study
  Country: US (occurrence: US)
  Receive Date: 20230817
  Receipt Date: 20231215
  Transmission Date: 20240110
  Serious: Yes (Other)
  Sender: FDA-Public Use
  Company Number: US-ABBVIE-5365732

PATIENT
  Age: 55 Year
  Sex: Female

DRUGS (5)
  1. HUMIRA [Suspect]
     Active Substance: ADALIMUMAB
     Indication: Rheumatoid arthritis
     Route: 058
     Dates: start: 20210918
  2. HUMIRA [Suspect]
     Active Substance: ADALIMUMAB
     Route: 058
  3. HUMIRA [Suspect]
     Active Substance: ADALIMUMAB
     Route: 058
     Dates: start: 20230417
  4. METHOTREXATE [Concomitant]
     Active Substance: METHOTREXATE
     Indication: Product used for unknown indication
  5. METHOTREXATE [Concomitant]
     Active Substance: METHOTREXATE
     Indication: Product used for unknown indication
     Dosage: STARTED AGAIN

REACTIONS (12)
  - Carpal tunnel syndrome [Recovering/Resolving]
  - Neck pain [Unknown]
  - Musculoskeletal discomfort [Unknown]
  - Unevaluable event [Unknown]
  - Musculoskeletal discomfort [Unknown]
  - Nerve compression [Unknown]
  - Pruritus [Unknown]
  - Amnesia [Unknown]
  - Back disorder [Unknown]
  - Facial discomfort [Unknown]
  - Arthritis [Unknown]
  - Ocular discomfort [Unknown]

NARRATIVE: CASE EVENT DATE: 20220901
